FAERS Safety Report 11884535 (Version 1)
Quarter: 2015Q4

REPORT INFORMATION
  Report Type: Spontaneous
  Country: US (occurrence: None)
  Receive Date: 20151231
  Receipt Date: 20151231
  Transmission Date: 20160305
  Serious: Yes (Other)
  Sender: FDA-Public Use
  Company Number: None

PATIENT
  Age: 77 Year
  Sex: Female
  Weight: 58.06 kg

DRUGS (5)
  1. PROGESTERONE. [Concomitant]
     Active Substance: PROGESTERONE
  2. GABAPENTIN. [Concomitant]
     Active Substance: GABAPENTIN
  3. ESTRADIOL TRANSDERMAL SYSTEM [Suspect]
     Active Substance: ESTRADIOL
     Indication: HOT FLUSH
     Dosage: ONE PATCH WEEKLY APPLIED AS MEDICATED PATCH TO SKIN
     Route: 061
     Dates: start: 20151012, end: 20151105
  4. PROPRANOLOL [Concomitant]
     Active Substance: PROPRANOLOL\PROPRANOLOL HYDROCHLORIDE
  5. ADVILE [Concomitant]

REACTIONS (2)
  - Hot flush [None]
  - Product adhesion issue [None]

NARRATIVE: CASE EVENT DATE: 20151230
